FAERS Safety Report 18092279 (Version 1)
Quarter: 2020Q3

REPORT INFORMATION
  Report Type: Report from Study
  Country: FR (occurrence: FR)
  Receive Date: 20200730
  Receipt Date: 20200730
  Transmission Date: 20201103
  Serious: Yes (Hospitalization, Other)
  Sender: FDA-Public Use
  Company Number: FR-BRISTOL-MYERS SQUIBB COMPANY-BMS-2019-064156

PATIENT
  Age: 53 Year
  Sex: Male

DRUGS (1)
  1. NIVOLUMAB [Suspect]
     Active Substance: NIVOLUMAB
     Indication: RENAL CANCER METASTATIC
     Dosage: 480 MILLIGRAM, Q4WK
     Route: 065
     Dates: start: 20180604, end: 20191216

REACTIONS (6)
  - Vomiting [Recovering/Resolving]
  - Cachexia [Unknown]
  - Diarrhoea [Recovering/Resolving]
  - Spinal cord compression [Recovered/Resolved]
  - Myocardial infarction [Recovering/Resolving]
  - General physical health deterioration [Unknown]

NARRATIVE: CASE EVENT DATE: 20190622
